FAERS Safety Report 8227452-3 (Version None)
Quarter: 2012Q1

REPORT INFORMATION
  Report Type: 
  Country: None (occurrence: None)
  Receive Date: 20120322
  Receipt Date: 20120316
  Transmission Date: 20120608
  Serious: Yes (Hospitalization, Other)
  Sender: FDA-Public Use
  Company Number: US-BAYER-2011-099688

PATIENT
  Age: 20 Year
  Sex: Female

DRUGS (2)
  1. YASMIN [Suspect]
     Dosage: UNK
     Route: 048
     Dates: start: 20040101
  2. YAZ [Suspect]
     Dosage: UNK
     Route: 048
     Dates: start: 20040101

REACTIONS (8)
  - WEIGHT INCREASED [None]
  - EMOTIONAL DISTRESS [None]
  - ANXIETY [None]
  - PAIN [None]
  - ACNE [None]
  - GALLBLADDER DISORDER [None]
  - PSYCHOLOGICAL TRAUMA [None]
  - INJURY [None]
